FAERS Safety Report 21000245 (Version 1)
Quarter: 2022Q2

REPORT INFORMATION
  Report Type: Spontaneous
  Country: SE (occurrence: SE)
  Receive Date: 20220623
  Receipt Date: 20220623
  Transmission Date: 20220721
  Serious: Yes (Hospitalization)
  Sender: FDA-Public Use
  Company Number: None

PATIENT
  Age: 91 Year
  Sex: Female

DRUGS (13)
  1. DIAZEPAM [Suspect]
     Active Substance: DIAZEPAM
     Indication: Product used for unknown indication
     Dates: start: 20220427
  2. HALDOL [Suspect]
     Active Substance: HALOPERIDOL
     Indication: Product used for unknown indication
     Dates: start: 20220427
  3. TRIMEPRAZINE [Suspect]
     Active Substance: TRIMEPRAZINE
     Indication: Product used for unknown indication
     Dates: start: 20220427
  4. OZEMPIC [Concomitant]
     Active Substance: SEMAGLUTIDE
     Indication: Product used for unknown indication
     Dosage: ONE DOSE ONCE A WEEK, OZEMPIC 0.5 MG , FREQUENCY: 1 WEEKS
     Dates: start: 20210910
  5. ALLOPURINOL [Concomitant]
     Active Substance: ALLOPURINOL
     Indication: Product used for unknown indication
     Dosage: ALLOPURINOL SANDOZ 100 MG , UNIT DOSE: 200 MG, FREQUENCY : 1 DAYS
     Dates: start: 20210910
  6. Amlodipin Sandoz [Concomitant]
     Indication: Product used for unknown indication
     Dosage: AMLODIPIN SANDOZ 5 MG , UNIT DOSE: 5 MG, FREQUENCY : 1 DAYS
     Dates: start: 20210910
  7. ACETAMINOPHEN [Concomitant]
     Active Substance: ACETAMINOPHEN
     Indication: Product used for unknown indication
     Dosage: ALVEDON 500 MG , UNIT DOSE: 3000 MG, FREQUENCY : 1 DAYS
     Dates: start: 20211206
  8. FOLVIDON [Concomitant]
     Indication: Product used for unknown indication
     Dosage: UNIT DOSE: 1 MG, FREQUENCY : 1 DAYS
     Dates: start: 20210910
  9. IMOVANE [Concomitant]
     Active Substance: ZOPICLONE
     Indication: Product used for unknown indication
     Dosage: 1 TABLET OVERNIGHT IF NEEDED, IMOVANEI 5 MG TABLET,UNIT DOSE: 5 MG, FREQUENCY : 1 AS REQUIRED
     Dates: start: 20220222
  10. AVASTIN [Concomitant]
     Active Substance: BEVACIZUMAB
     Indication: Product used for unknown indication
     Dosage: 0.05 ML INTRAVITREAL IF NEEDED, AVASTIN 25 MG / ML, UNIT DOSE: 10.05 ML, FREQUENCY : 1 AS REQUIRED
  11. Betolvex [Concomitant]
     Indication: Product used for unknown indication
     Dosage: BETOLVEX 1 MG , UNIT DOSE: 1 MG, FREQUENCY : 1 DAYS
     Dates: start: 20210910
  12. LAXIMYL [Concomitant]
     Indication: Product used for unknown indication
     Dosage: FREQUENCY : 1 AS REQUIRED?1-3 SACHETS IF NEEDED
     Dates: start: 20220125
  13. OXYCODONE HYDROCHLORIDE [Concomitant]
     Active Substance: OXYCODONE HYDROCHLORIDE
     Indication: Product used for unknown indication
     Dosage: OXYCODONE ACTAVIS 5 MG , UNIT DOSE: 5 MG, FREQUENCY: 1 AS REQUIRED?1 CAPSULE IF NEEDED FOR PAIN MAX
     Dates: start: 20220111

REACTIONS (1)
  - Swollen tongue [Recovered/Resolved]

NARRATIVE: CASE EVENT DATE: 20220427
